FAERS Safety Report 9004867 (Version 1)
Quarter: 2013Q1

REPORT INFORMATION
  Report Type: Spontaneous
  Country: US (occurrence: None)
  Receive Date: 20130107
  Receipt Date: 20130107
  Transmission Date: 20140127
  Serious: Yes (Other)
  Sender: FDA-Public Use
  Company Number: None

PATIENT
  Age: 60 Year
  Sex: Male

DRUGS (1)
  1. SMILE^S PRID DRAWING SALVE [Suspect]

REACTIONS (5)
  - Drug hypersensitivity [None]
  - Skin irritation [None]
  - Arthropod bite [None]
  - Retinal detachment [None]
  - Cataract [None]
